FAERS Safety Report 14547275 (Version 5)
Quarter: 2020Q4

REPORT INFORMATION
  Report Type: Spontaneous
  Country: CZ (occurrence: CZ)
  Receive Date: 20180219
  Receipt Date: 20201209
  Transmission Date: 20210113
  Serious: Yes (Other)
  Sender: FDA-Public Use
  Company Number: CZ-MYLANLABS-2018M1010467

PATIENT
  Age: 58 Year
  Sex: Male

DRUGS (22)
  1. AGEN [Suspect]
     Active Substance: AMLODIPINE BESYLATE
     Indication: CARDIAC FAILURE
  2. CONCOR COR [Suspect]
     Active Substance: BISOPROLOL FUMARATE
     Indication: CARDIAC FAILURE
  3. VEROSPIRONE [Suspect]
     Active Substance: SPIRONOLACTONE
     Dosage: 25 MG, BID
     Route: 065
     Dates: start: 200404, end: 2004
  4. HUMULIN R [Concomitant]
     Active Substance: INSULIN HUMAN
     Dosage: 8 IU, QD
     Route: 058
  5. ATORVASTATIN [Suspect]
     Active Substance: ATORVASTATIN
     Indication: CARDIAC FAILURE ACUTE
     Dosage: 10 MG, QD
     Route: 065
     Dates: start: 200404
  6. ATORVASTATIN [Suspect]
     Active Substance: ATORVASTATIN
     Indication: CARDIAC FAILURE
     Dosage: 10 MG, QHS
  7. HUMULIN R [Concomitant]
     Active Substance: INSULIN HUMAN
     Dosage: 8 IU, QD
     Route: 058
  8. HUMULIN N [Concomitant]
     Active Substance: INSULIN HUMAN
     Indication: TYPE 2 DIABETES MELLITUS
     Dosage: 12 IU, QHS
     Route: 058
     Dates: start: 2004
  9. VEROSPIRONE [Suspect]
     Active Substance: SPIRONOLACTONE
     Indication: CARDIAC FAILURE ACUTE
     Dosage: 50 MG, QD
     Route: 065
     Dates: start: 200404, end: 2004
  10. VEROSPIRONE [Suspect]
     Active Substance: SPIRONOLACTONE
     Dosage: 25 MILLIGRAM, QD (25 MG, BID)
     Route: 065
     Dates: start: 200404, end: 2004
  11. HUMULIN R [Concomitant]
     Active Substance: INSULIN HUMAN
     Dosage: 20 IU, QD
     Route: 058
  12. HUMULIN R [Concomitant]
     Active Substance: INSULIN HUMAN
     Dosage: 16 IU, QHS
     Route: 058
  13. HUMULIN N [Concomitant]
     Active Substance: INSULIN HUMAN
     Dosage: 12 IU, QHS
     Route: 058
  14. AGEN [Suspect]
     Active Substance: AMLODIPINE BESYLATE
     Indication: CARDIAC FAILURE ACUTE
     Dosage: 10,QT, QD
     Route: 065
     Dates: start: 200404, end: 2004
  15. CONCOR COR [Suspect]
     Active Substance: BISOPROLOL FUMARATE
     Indication: CARDIAC FAILURE ACUTE
     Dosage: 1-0-1/2 5 MG, UNK
     Route: 065
     Dates: start: 200404, end: 2004
  16. FURON                              /00032601/ [Suspect]
     Active Substance: FUROSEMIDE
     Dosage: 40 MG, QD
  17. HUMULIN R [Concomitant]
     Active Substance: INSULIN HUMAN
     Dosage: 20-8-8 IU
  18. FURON                              /00032601/ [Suspect]
     Active Substance: FUROSEMIDE
     Indication: CARDIAC FAILURE ACUTE
     Dosage: 40 MG, QD
     Route: 065
     Dates: start: 200404, end: 2004
  19. VEROSPIRONE [Suspect]
     Active Substance: SPIRONOLACTONE
     Dosage: 25 MG, UNK
     Route: 065
  20. HUMULIN R [Concomitant]
     Active Substance: INSULIN HUMAN
     Indication: TYPE 2 DIABETES MELLITUS
     Dosage: 16-8-9 IU
     Route: 058
     Dates: start: 2004
  21. HUMULIN R [Concomitant]
     Active Substance: INSULIN HUMAN
     Dosage: 16 IU, QD
     Route: 058
  22. HUMULIN R [Concomitant]
     Active Substance: INSULIN HUMAN
     Dosage: 8 IU, QHS
     Route: 058

REACTIONS (3)
  - Pulmonary oedema [Recovered/Resolved]
  - Hypertension [Unknown]
  - Dyspnoea [Recovered/Resolved]

NARRATIVE: CASE EVENT DATE: 2004
